FAERS Safety Report 10473699 (Version 3)
Quarter: 2014Q4

REPORT INFORMATION
  Report Type: Spontaneous
  Country: CL (occurrence: None)
  Receive Date: 20140922
  Receipt Date: 20141029
  Transmission Date: 20150528
  Serious: Yes (Hospitalization)
  Sender: FDA-Public Use
  Company Number: KAD201409-001110

PATIENT
  Age: 54 Year
  Sex: Male

DRUGS (3)
  1. ABT-450 [Suspect]
     Active Substance: VERUPREVIR
     Indication: HEPATITIS C
     Route: 048
     Dates: start: 20130830, end: 20131122
  2. RIBAVIRIN. [Suspect]
     Active Substance: RIBAVIRIN
     Indication: HEPATITIS C
     Dosage: 1000 MG DAILY (DIVIDED DOSES TWICE DAILY)
     Route: 048
     Dates: start: 20130830, end: 20131122
  3. ABT-333 [Suspect]
     Active Substance: DASABUVIR
     Indication: HEPATITIS C
     Dosage: 250 MG TWO TIMES A DAY (500 MG DAILY)
     Route: 048
     Dates: start: 20130830, end: 20131122

REACTIONS (3)
  - Loss of consciousness [None]
  - Abdominal discomfort [None]
  - Epilepsy [None]

NARRATIVE: CASE EVENT DATE: 20131213
